FAERS Safety Report 14424288 (Version 1)
Quarter: 2018Q1

REPORT INFORMATION
  Report Type: Spontaneous
  Country: JP (occurrence: JP)
  Receive Date: 20180123
  Receipt Date: 20180123
  Transmission Date: 20180509
  Serious: Yes (Hospitalization, Other)
  Sender: FDA-Public Use
  Company Number: JP-VISTAPHARM, INC.-VER201801-000168

PATIENT
  Age: 33 Year
  Sex: Male

DRUGS (3)
  1. HYDROCODONE AND ACETAMINOPHEN [Suspect]
     Active Substance: ACETAMINOPHEN\HYDROCODONE
     Indication: PYREXIA
  2. LOXOPROFEN SODIUM [Concomitant]
     Active Substance: LOXOPROFEN SODIUM
  3. SITAFLOXACIN [Concomitant]
     Active Substance: SITAFLOXACIN

REACTIONS (2)
  - Tubulointerstitial nephritis [Unknown]
  - Renal impairment [Recovering/Resolving]
